FAERS Safety Report 7371008-1 (Version None)
Quarter: 2011Q1

REPORT INFORMATION
  Report Type: 
  Country: None (occurrence: None)
  Receive Date: 20110321
  Receipt Date: 20110321
  Transmission Date: 20110831
  Serious: Yes (Hospitalization)
  Sender: FDA-Public Use
  Company Number: None

PATIENT
  Age: 5 Year
  Sex: Female
  Weight: 18.1439 kg

DRUGS (1)
  1. LAMICTAL [Suspect]
     Indication: CONVULSION
     Dosage: 5MG QD PO
     Route: 048
     Dates: start: 20110204, end: 20110214

REACTIONS (2)
  - STREPTOCOCCAL INFECTION [None]
  - STEVENS-JOHNSON SYNDROME [None]
